FAERS Safety Report 6407034-6 (Version None)
Quarter: 2009Q4

REPORT INFORMATION
  Report Type: 
  Country: None (occurrence: None)
  Receive Date: 20091020
  Receipt Date: 20091007
  Transmission Date: 20100525
  Serious: Yes (Other)
  Sender: FDA-Public Use
  Company Number: NL-PFIZER INC-2009279347

PATIENT
  Age: 62 Year

DRUGS (3)
  1. DOSTINEX [Suspect]
     Indication: PROLACTINOMA
     Dosage: 0.5 MG, WEEKLY
     Dates: start: 19960201, end: 20090801
  2. CRESTOR [Concomitant]
     Indication: TYPE IIA HYPERLIPIDAEMIA
  3. TEMAZEPAM [Concomitant]
     Indication: INSOMNIA
     Dosage: 20 MG, AS NEEDED

REACTIONS (6)
  - FEELING JITTERY [None]
  - HEART RATE IRREGULAR [None]
  - HOT FLUSH [None]
  - OXYGEN SATURATION DECREASED [None]
  - PERICARDIAL EFFUSION [None]
  - SOMNOLENCE [None]
